FAERS Safety Report 6811837-3 (Version None)
Quarter: 2010Q3

REPORT INFORMATION
  Report Type: 
  Country: None (occurrence: None)
  Receive Date: 20100701
  Receipt Date: 20100623
  Transmission Date: 20110219
  Serious: Yes (Hospitalization)
  Sender: FDA-Public Use
  Company Number: US-EISAI INC.-E7272-00066-CLI-US

PATIENT
  Sex: Male
  Weight: 81 kg

DRUGS (3)
  1. ONTAK [Suspect]
     Route: 041
     Dates: start: 20100616, end: 20100618
  2. MELANOMA-SPECIFIC T CELLS [Concomitant]
     Dosage: 18.6 X 10^9
     Route: 041
     Dates: start: 20100622, end: 20100622
  3. PROLEUKIN [Concomitant]
     Route: 058
     Dates: start: 20100622

REACTIONS (3)
  - HYPOXIA [None]
  - PULMONARY OEDEMA [None]
  - PYREXIA [None]
